FAERS Safety Report 10035830 (Version 1)
Quarter: 2014Q1

REPORT INFORMATION
  Report Type: Spontaneous
  Country: FR (occurrence: FR)
  Receive Date: 20140325
  Receipt Date: 20140325
  Transmission Date: 20141002
  Serious: Yes (Hospitalization)
  Sender: FDA-Public Use
  Company Number: FR-MERZ PHARMACEUTICALS, LLC DRUG SAFETY-14MRZ-00146

PATIENT
  Age: 72 Year
  Sex: Male

DRUGS (14)
  1. XEOMIN [Suspect]
     Indication: MUSCLE SPASTICITY
     Route: 030
     Dates: start: 20140107, end: 20140107
  2. CIRCADIN [Concomitant]
     Route: 048
  3. LEVOTHYROX [Concomitant]
     Route: 048
  4. EFFEXOR [Concomitant]
     Dosage: 75 MG DAILY
     Route: 048
  5. KARDEGIC [Concomitant]
     Dosage: 75 MG DAILY
     Route: 048
  6. LEXOMIL [Concomitant]
     Dosage: 6MG
     Route: 048
  7. IMOVANE [Concomitant]
     Dosage: 7.5MG DAILY
     Route: 048
  8. EZETROL [Concomitant]
     Dosage: 10MG DAILY
     Route: 048
  9. TAHOR [Concomitant]
     Dosage: 80MG DAILY
     Route: 048
  10. PLAVIX [Concomitant]
     Dosage: 75MG DAILY
     Route: 048
  11. MOPRAL [Concomitant]
     Dosage: 20MG DAILY
     Route: 048
  12. DAFALGAN CODEINE [Concomitant]
     Dosage: 500MG/30MG DAILY
     Route: 048
  13. TOPALGIC [Concomitant]
     Dosage: 150MG DAILY
     Route: 048
  14. PROSTSECURA [Concomitant]

REACTIONS (5)
  - Fall [Unknown]
  - Gait disturbance [Unknown]
  - Asthenia [Unknown]
  - Muscular weakness [Unknown]
  - Dysphagia [Unknown]
